FAERS Safety Report 14605266 (Version 4)
Quarter: 2019Q1

REPORT INFORMATION
  Report Type: Report from Study
  Country: GB (occurrence: GB)
  Receive Date: 20180306
  Receipt Date: 20190202
  Transmission Date: 20190417
  Serious: Yes (Other)
  Sender: FDA-Public Use
  Company Number: PHHY2018GB034221

PATIENT
  Age: 46 Year
  Sex: Male
  Weight: 111 kg

DRUGS (2)
  1. ENTRESTO [Suspect]
     Active Substance: SACUBITRIL\VALSARTAN
     Indication: CARDIAC FAILURE CHRONIC
     Dosage: 200 MG, (SACUBITRIL 97 MG/ VALSARTAN 103 MG), BID
     Route: 048
     Dates: start: 20170520
  2. ENTRESTO [Suspect]
     Active Substance: SACUBITRIL\VALSARTAN
     Dosage: 200 MG, (SACUBITRIL 97 MG/ VALSARTAN 103 MG), BID
     Route: 048
     Dates: start: 20170603

REACTIONS (2)
  - Type 2 diabetes mellitus [Not Recovered/Not Resolved]
  - Blood glucose increased [Unknown]

NARRATIVE: CASE EVENT DATE: 20170613
